FAERS Safety Report 10774863 (Version 1)
Quarter: 2015Q1

REPORT INFORMATION
  Report Type: Spontaneous
  Country: US (occurrence: None)
  Receive Date: 20150206
  Receipt Date: 20150206
  Transmission Date: 20150721
  Serious: Yes (Hospitalization)
  Sender: FDA-Public Use
  Company Number: HYP201408-000059

PATIENT
  Age: 02 Year
  Sex: Male

DRUGS (5)
  1. TYLENOL/00020001/ (PARACETAMOL) [Concomitant]
  2. CITRULLINE [Concomitant]
     Active Substance: CITRULLINE
  3. RAVICTI [Suspect]
     Active Substance: GLYCEROL PHENYLBUTYRATE
     Indication: UREA CYCLE ENZYME DEFICIENCY
     Dates: start: 20130715, end: 201408
  4. ARGININE [Concomitant]
     Active Substance: ARGININE
  5. CALCIUM CARBONATE. [Concomitant]
     Active Substance: CALCIUM CARBONATE

REACTIONS (3)
  - Hyperammonaemic crisis [None]
  - Fatigue [None]
  - Cough [None]

NARRATIVE: CASE EVENT DATE: 201408
